FAERS Safety Report 8494417 (Version 3)
Quarter: 2012Q4

REPORT INFORMATION
  Report Type: 
  Country: AR (occurrence: AR)
  Receive Date: 20120404
  Receipt Date: 20121204
  Transmission Date: 20130627
  Serious: Yes (Other)
  Sender: FDA-Public Use
  Company Number: AR-ELI_LILLY_AND_COMPANY-AR201204000159

PATIENT
  Age: 61 Year
  Sex: Male

DRUGS (4)
  1. BYETTA [Suspect]
     Indication: DIABETES MELLITUS
     Dosage: 10 ug, bid
     Dates: start: 2010, end: 201201
  2. BYETTA [Suspect]
     Dosage: UNK, unknown
  3. METFORMIN [Concomitant]
  4. ANTIHYPERTENSIVES [Concomitant]

REACTIONS (8)
  - Pancreatitis [Not Recovered/Not Resolved]
  - Lipoma [Unknown]
  - Pancreatic cyst [Not Recovered/Not Resolved]
  - Scan abnormal [Recovered/Resolved]
  - Scan abdomen abnormal [Recovered/Resolved]
  - White blood cell count increased [Recovering/Resolving]
  - Pain [Recovering/Resolving]
  - Abdominal discomfort [Not Recovered/Not Resolved]
